FAERS Safety Report 11170802 (Version 1)
Quarter: 2015Q2

REPORT INFORMATION
  Report Type: Spontaneous
  Country: US (occurrence: None)
  Receive Date: 20150515
  Receipt Date: 20150515
  Transmission Date: 20150821
  Serious: Yes (Hospitalization, Other)
  Sender: FDA-Public Use
  Company Number: 2014014940

PATIENT
  Age: 61 Year
  Sex: Female

DRUGS (4)
  1. CIMZIA [Suspect]
     Active Substance: CERTOLIZUMAB PEGOL
     Indication: CROHN^S DISEASE
     Dosage: DOSE UNKNOWN
     Dates: start: 20131107, end: 201312
  2. ASPIRIN (ACETYLSALICYLIC ACID) [Concomitant]
     Active Substance: ASPIRIN
  3. REMICADE [Suspect]
     Active Substance: INFLIXIMAB
     Indication: PRODUCT USED FOR UNKNOWN INDICATION
     Dates: start: 201408
  4. PRESISOL (METHYLPREDNISOLONE SODIUM SUCCINATE) [Concomitant]

REACTIONS (4)
  - Incorrect product storage [None]
  - Pain in extremity [None]
  - Clostridium difficile infection [None]
  - Malaise [None]

NARRATIVE: CASE EVENT DATE: 201311
